FAERS Safety Report 7969326-9 (Version None)
Quarter: 2011Q4

REPORT INFORMATION
  Report Type: 
  Country: None (occurrence: None)
  Receive Date: 20111209
  Receipt Date: 20111201
  Transmission Date: 20120403
  Serious: Yes (Other)
  Sender: FDA-Public Use
  Company Number: GB-ASTRAZENECA-2011SE72770

PATIENT
  Age: 63 Year
  Sex: Female

DRUGS (3)
  1. FLUTICASONE PROPIONATE/SALMETEROL [Concomitant]
     Indication: CHRONIC OBSTRUCTIVE PULMONARY DISEASE
     Route: 055
     Dates: end: 20111026
  2. SYMBICORT [Suspect]
     Indication: CHRONIC OBSTRUCTIVE PULMONARY DISEASE
     Dosage: TWO DF DAILY
     Route: 055
     Dates: start: 20111027, end: 20111031
  3. VENTOLIN [Concomitant]
     Indication: CHRONIC OBSTRUCTIVE PULMONARY DISEASE
     Route: 055

REACTIONS (4)
  - NAUSEA [None]
  - DYSPNOEA [None]
  - PALPITATIONS [None]
  - AGITATION [None]
